FAERS Safety Report 24873061 (Version 1)
Quarter: 2025Q1

REPORT INFORMATION
  Report Type: Spontaneous
  Country: IN (occurrence: IN)
  Receive Date: 20250122
  Receipt Date: 20250122
  Transmission Date: 20250409
  Serious: Yes (Life-Threatening, Hospitalization)
  Sender: ACCORD
  Company Number: IN-MLMSERVICE-20250108-PI336677-00306-1

PATIENT
  Age: 40 Year
  Sex: Male

DRUGS (4)
  1. MYCOPHENOLATE SODIUM [Suspect]
     Active Substance: MYCOPHENOLATE SODIUM
     Indication: Immunosuppressant drug therapy
     Dosage: DOSE WAS REDUCED
     Dates: start: 2022, end: 2023
  2. TACROLIMUS [Suspect]
     Active Substance: TACROLIMUS
     Indication: Immunosuppressant drug therapy
     Dates: start: 2022
  3. LAPINE T-LYMPHOCYTE IMMUNE GLOBULIN [Suspect]
     Active Substance: LAPINE T-LYMPHOCYTE IMMUNE GLOBULIN
     Indication: Immunosuppressant drug therapy
     Dates: start: 202204, end: 2022
  4. PREDNISOLONE [Suspect]
     Active Substance: PREDNISOLONE
     Indication: Immunosuppressant drug therapy
     Dates: start: 2022

REACTIONS (5)
  - Respiratory tract infection [Recovering/Resolving]
  - Klebsiella infection [Recovering/Resolving]
  - Sepsis [Recovering/Resolving]
  - Pneumonia [Recovering/Resolving]
  - Excessive dynamic airway collapse [Recovering/Resolving]

NARRATIVE: CASE EVENT DATE: 20221001
